FAERS Safety Report 8533958 (Version 3)
Quarter: 2013Q2

REPORT INFORMATION
  Report Type: Spontaneous
  Country: US (occurrence: US)
  Receive Date: 20120427
  Receipt Date: 20130419
  Transmission Date: 20140414
  Serious: Yes (Other)
  Sender: FDA-Public Use
  Company Number: US-ROCHE-1061695

PATIENT
  Sex: Female
  Weight: 95.34 kg

DRUGS (4)
  1. ACCUTANE [Suspect]
     Indication: ACNE
     Route: 048
     Dates: start: 200402
  2. ACCUTANE [Suspect]
     Route: 048
     Dates: start: 20040319, end: 20040522
  3. ACCUTANE [Suspect]
     Route: 048
     Dates: end: 200408
  4. YASMIN [Concomitant]

REACTIONS (5)
  - Crohn^s disease [Unknown]
  - Inflammatory bowel disease [Unknown]
  - Depression [Unknown]
  - Injury [Unknown]
  - Small intestinal obstruction [Unknown]
